FAERS Safety Report 7086369-0 (Version None)
Quarter: 2010Q4

REPORT INFORMATION
  Report Type: 
  Country: None (occurrence: None)
  Receive Date: 20101105
  Receipt Date: 20101027
  Transmission Date: 20110411
  Serious: Yes (Other)
  Sender: FDA-Public Use
  Company Number: US-JNJFOC-20101100248

PATIENT
  Sex: Female

DRUGS (2)
  1. REMICADE [Suspect]
     Indication: PSORIASIS
     Route: 042
  2. ENBREL [Concomitant]
     Indication: PSORIASIS
     Route: 058

REACTIONS (7)
  - DYSURIA [None]
  - NAUSEA [None]
  - PAIN [None]
  - PAIN IN JAW [None]
  - SWELLING [None]
  - VOMITING [None]
  - WEIGHT INCREASED [None]
